FAERS Safety Report 25026519 (Version 1)
Quarter: 2025Q1

REPORT INFORMATION
  Report Type: Report from Study
  Country: US (occurrence: US)
  Receive Date: 20250301
  Receipt Date: 20250301
  Transmission Date: 20250409
  Serious: Yes (Other)
  Sender: ACADIA PHARMACEUTICALS
  Company Number: US-ACADIA PHARMACEUTICALS INC.-ACA-2025-PIM-001726

PATIENT
  Sex: Female

DRUGS (10)
  1. NUPLAZID [Suspect]
     Active Substance: PIMAVANSERIN TARTRATE
     Indication: Parkinson^s disease
     Dosage: 34 MILLIGRAM, QD
     Route: 048
     Dates: start: 20250213
  2. NUPLAZID [Suspect]
     Active Substance: PIMAVANSERIN TARTRATE
     Indication: Dyskinesia
  3. DONEPEZIL [Concomitant]
     Active Substance: DONEPEZIL
  4. GOCOVRI [Concomitant]
     Active Substance: AMANTADINE
  5. NAPROXEN [Concomitant]
     Active Substance: NAPROXEN
  6. NEUPRO [Concomitant]
     Active Substance: ROTIGOTINE
  7. LEVOCETIRIZINE DIHYDROCHLORIDE [Concomitant]
     Active Substance: LEVOCETIRIZINE DIHYDROCHLORIDE
  8. CHOLECALCIFEROL [Concomitant]
     Active Substance: CHOLECALCIFEROL
  9. APOMORPHINE [Concomitant]
     Active Substance: APOMORPHINE
  10. NOURIANZ [Concomitant]
     Active Substance: ISTRADEFYLLINE

REACTIONS (3)
  - Hallucination [Unknown]
  - Product use issue [Unknown]
  - Product dose omission issue [Unknown]
